FAERS Safety Report 6224105-8 (Version None)
Quarter: 2009Q2

REPORT INFORMATION
  Report Type: 
  Country: None (occurrence: None)
  Receive Date: 20090612
  Receipt Date: 20090310
  Transmission Date: 20091009
  Serious: No
  Sender: FDA-Public Use
  Company Number: US-ABBOTT-09P-163-0561578-00

PATIENT
  Sex: Female
  Weight: 46.762 kg

DRUGS (12)
  1. HUMIRA [Suspect]
     Indication: CROHN'S DISEASE
     Dates: start: 20090223, end: 20090223
  2. HUMIRA [Suspect]
     Dates: start: 20090309, end: 20090309
  3. ASACOL [Concomitant]
     Indication: COLITIS ULCERATIVE
  4. WELCHOL [Concomitant]
     Indication: CROHN'S DISEASE
  5. LISINOPRIL [Concomitant]
     Indication: HYPERTENSION
     Route: 048
  6. FOLIC ACID [Concomitant]
     Indication: DRUG USE FOR UNKNOWN INDICATION
  7. ATIVAN [Concomitant]
     Indication: ANXIETY
  8. FOSAMAX [Concomitant]
     Indication: OSTEOPOROSIS
  9. CALCIUM [Concomitant]
     Indication: DRUG USE FOR UNKNOWN INDICATION
  10. L-LYSINE [Concomitant]
     Indication: RASH
  11. MULTI-VITAMINS [Concomitant]
     Indication: DRUG USE FOR UNKNOWN INDICATION
  12. KLOR-CON [Concomitant]
     Indication: BLOOD POTASSIUM DECREASED

REACTIONS (6)
  - CHEST PAIN [None]
  - CONFUSIONAL STATE [None]
  - DIARRHOEA [None]
  - INFLAMMATION [None]
  - PAIN [None]
  - RECTAL HAEMORRHAGE [None]
